FAERS Safety Report 18579708 (Version 2)
Quarter: 2020Q4

REPORT INFORMATION
  Report Type: Report from Study
  Country: CZ (occurrence: CZ)
  Receive Date: 20201204
  Receipt Date: 20201223
  Transmission Date: 20210114
  Serious: Yes (Hospitalization, Other)
  Sender: FDA-Public Use
  Company Number: CZ-AMGEN-CZECT2020192784

PATIENT
  Age: 52 Year
  Sex: Female

DRUGS (5)
  1. SORBIFER [FERROUS SULFATE] [Concomitant]
     Indication: ANAEMIA
     Dosage: 1 UNIT, QD
     Route: 065
     Dates: start: 20111101
  2. INDOMETACIN [Concomitant]
     Active Substance: INDOMETHACIN
     Indication: MIGRAINE
     Dosage: 50 MILLIGRAM, AS NECESSARY
     Route: 065
     Dates: start: 2015
  3. SUMATRIPTAN [SUMATRIPTAN SUCCINATE] [Concomitant]
     Active Substance: SUMATRIPTAN SUCCINATE
     Dosage: UNK
  4. ALUTARD [HERBAL POLLEN NOS] [Concomitant]
     Indication: ALLERGY TO ARTHROPOD STING
     Dosage: 5 MILLILITER
     Route: 058
     Dates: start: 20191001
  5. ERENUMAB [Suspect]
     Active Substance: ERENUMAB
     Indication: MIGRAINE
     Dosage: 70 MILLIGRAM, QMO
     Route: 058
     Dates: start: 20200831, end: 20201119

REACTIONS (1)
  - Anaphylactic reaction [Recovered/Resolved]

NARRATIVE: CASE EVENT DATE: 20201119
